FAERS Safety Report 18776740 (Version 2)
Quarter: 2021Q1

REPORT INFORMATION
  Report Type: Spontaneous
  Country: JP (occurrence: JP)
  Receive Date: 20210122
  Receipt Date: 20210126
  Transmission Date: 20210419
  Serious: Yes (Death)
  Sender: FDA-Public Use
  Company Number: JP-009507513-2101JPN009767

PATIENT
  Age: 15 Day
  Sex: Male
  Weight: 3.28 kg

DRUGS (5)
  1. MIRTAZAPINE. [Suspect]
     Active Substance: MIRTAZAPINE
     Dosage: UNK
     Route: 048
  2. MIRTAZAPINE. [Suspect]
     Active Substance: MIRTAZAPINE
     Dosage: UNK
     Route: 063
  3. SERTRALINE HYDROCHLORIDE. [Suspect]
     Active Substance: SERTRALINE HYDROCHLORIDE
     Dosage: UNK
  4. TRIAZOLAM. [Suspect]
     Active Substance: TRIAZOLAM
     Dosage: UNK
  5. NITRAZEPAM [Suspect]
     Active Substance: NITRAZEPAM
     Dosage: UNK

REACTIONS (4)
  - Exposure via breast milk [Unknown]
  - Toxicity to various agents [Fatal]
  - Intentional overdose [Unknown]
  - Intentional product misuse to child [Unknown]
